FAERS Safety Report 14758014 (Version 1)
Quarter: 2018Q2

REPORT INFORMATION
  Report Type: Spontaneous
  Country: FI (occurrence: FI)
  Receive Date: 20180413
  Receipt Date: 20180413
  Transmission Date: 20180711
  Serious: Yes (Other)
  Sender: FDA-Public Use
  Company Number: FI-TEVA-2018-FI-882303

PATIENT
  Age: 78 Year
  Sex: Female

DRUGS (12)
  1. COHEMIN DEPOT [Concomitant]
  2. MAREVAN [Concomitant]
     Active Substance: WARFARIN SODIUM
  3. LIPCUT [Concomitant]
     Active Substance: SIMVASTATIN
  4. DIAPAM (DIAZEPAM) [Concomitant]
     Active Substance: DIAZEPAM
  5. COZAAR [Concomitant]
     Active Substance: LOSARTAN POTASSIUM
  6. FURESIS [Concomitant]
     Active Substance: FUROSEMIDE
  7. DIFORMIN RETARD [Concomitant]
     Active Substance: METFORMIN HYDROCHLORIDE
  8. VENTOLINE DISKUS [Concomitant]
     Active Substance: ALBUTEROL SULFATE
  9. DOXIMED [Suspect]
     Active Substance: DOXYCYCLINE
     Indication: BRONCHITIS
     Dosage: 150,MG,DAILY
     Route: 048
     Dates: start: 20180209, end: 20180209
  10. KALEORID [Concomitant]
     Active Substance: POTASSIUM CHLORIDE
  11. METOHEXAL [Concomitant]
     Active Substance: METOPROLOL SUCCINATE
  12. ADALAT [Concomitant]
     Active Substance: NIFEDIPINE

REACTIONS (4)
  - Loss of consciousness [Recovered/Resolved]
  - Fall [Recovered/Resolved]
  - Hypoaesthesia [Recovered/Resolved]
  - Headache [Recovered/Resolved]

NARRATIVE: CASE EVENT DATE: 20180209
